FAERS Safety Report 9768682 (Version 2)
Quarter: 2014Q1

REPORT INFORMATION
  Report Type: Spontaneous
  Country: US (occurrence: US)
  Receive Date: 20131218
  Receipt Date: 20140120
  Transmission Date: 20141002
  Serious: Yes (Death)
  Sender: FDA-Public Use
  Company Number: US-BIOGENIDEC-2013BI120122

PATIENT
  Sex: Male

DRUGS (12)
  1. AVONEX [Suspect]
     Indication: MULTIPLE SCLEROSIS
     Route: 030
     Dates: start: 20070122
  2. ACTONEL [Concomitant]
  3. AMBIEN [Concomitant]
  4. CELEBREX [Concomitant]
  5. CLONAZEPAM [Concomitant]
  6. HYDROCODONE/ACETAMINOPHEN [Concomitant]
  7. LOVASTATIN [Concomitant]
  8. METOPROLOL TARTRATE [Concomitant]
  9. PLAVIX [Concomitant]
  10. PREDNISONE [Concomitant]
  11. RELPAX [Concomitant]
  12. TESTIM [Concomitant]

REACTIONS (1)
  - Death [Fatal]
